FAERS Safety Report 4589637-7 (Version None)
Quarter: 2005Q1

REPORT INFORMATION
  Report Type: 
  Country: None (occurrence: None)
  Receive Date: 20050223
  Receipt Date: 20050218
  Transmission Date: 20050727
  Serious: Yes (Hospitalization)
  Sender: FDA-Public Use
  Company Number: PHBS2005JP02482

PATIENT
  Age: 60 Year
  Sex: Male

DRUGS (5)
  1. LAMISIL [Suspect]
     Indication: TINEA CRURIS
     Dosage: 125 MG, QD
     Route: 048
     Dates: start: 20050118, end: 20050126
  2. CELESTAMINE TAB [Concomitant]
     Dosage: 2 DF/D
     Route: 048
     Dates: end: 20050121
  3. LANDEL [Concomitant]
     Dosage: 60 MG/DAY
     Route: 048
  4. BASEN [Concomitant]
     Dosage: 0.9 MG/DAY
     Route: 048
  5. RABEPRAZOLE SODIUM [Concomitant]
     Dosage: 10 MG/DAY
     Route: 048

REACTIONS (9)
  - ABDOMINAL PAIN [None]
  - ALANINE AMINOTRANSFERASE INCREASED [None]
  - ASPARTATE AMINOTRANSFERASE INCREASED [None]
  - ASTHENIA [None]
  - FACE OEDEMA [None]
  - GAMMA-GLUTAMYLTRANSFERASE INCREASED [None]
  - NAUSEA [None]
  - PRURITUS [None]
  - URTICARIA [None]
